FAERS Safety Report 24553728 (Version 1)
Quarter: 2024Q4

REPORT INFORMATION
  Report Type: Report from Study
  Country: US (occurrence: US)
  Receive Date: 20241028
  Receipt Date: 20241028
  Transmission Date: 20250115
  Serious: No
  Sender: ROCHE
  Company Number: US-ROCHE-3578049

PATIENT
  Age: 59 Year
  Sex: Female
  Weight: 93.44 kg

DRUGS (4)
  1. NUTROPIN AQ [Suspect]
     Active Substance: SOMATROPIN
     Indication: Hypopituitarism
     Dosage: GIVEN AT NIGHT ;ONGOING: NO
     Route: 058
     Dates: start: 2016, end: 202305
  2. NUTROPIN AQ [Suspect]
     Active Substance: SOMATROPIN
     Dosage: GIVEN AT NIGHT ;ONGOING: NO
     Route: 058
     Dates: start: 20240530
  3. XOLAIR [Suspect]
     Active Substance: OMALIZUMAB
     Indication: Hypersensitivity
     Route: 058
  4. XOLAIR [Suspect]
     Active Substance: OMALIZUMAB
     Indication: Asthma

REACTIONS (2)
  - Off label use [Unknown]
  - No adverse event [Unknown]

NARRATIVE: CASE EVENT DATE: 20160101
